FAERS Safety Report 8018837-9 (Version None)
Quarter: 2012Q1

REPORT INFORMATION
  Report Type: 
  Country: None (occurrence: None)
  Receive Date: 20120103
  Receipt Date: 20111220
  Transmission Date: 20120608
  Serious: Yes (Hospitalization, Other)
  Sender: FDA-Public Use
  Company Number: CH-PFIZER INC-2011314733

PATIENT
  Age: 47 Year
  Sex: Female

DRUGS (3)
  1. PANTOPRAZOLE SODIUM [Suspect]
     Indication: UNEVALUABLE EVENT
     Dosage: 40 MG, 1X/DAY
     Route: 048
     Dates: start: 20111111, end: 20111121
  2. BETASERC [Suspect]
     Indication: DIZZINESS
     Dosage: 32 MG (16 MG,2 IN 1 D)
     Route: 048
     Dates: start: 20111111, end: 20111121
  3. BETASERC [Suspect]

REACTIONS (12)
  - RASH [None]
  - VIRAL INFECTION [None]
  - CUPULOLITHIASIS [None]
  - RASH PAPULAR [None]
  - VARICELLA [None]
  - PYREXIA [None]
  - RASH PUSTULAR [None]
  - SKIN HYPERPIGMENTATION [None]
  - HEPATOCELLULAR INJURY [None]
  - RASH PRURITIC [None]
  - TOXIC SKIN ERUPTION [None]
  - SYSTEMIC INFLAMMATORY RESPONSE SYNDROME [None]
